FAERS Safety Report 7604026-6 (Version None)
Quarter: 2011Q3

REPORT INFORMATION
  Report Type: 
  Country: None (occurrence: None)
  Receive Date: 20110712
  Receipt Date: 20110706
  Transmission Date: 20111222
  Serious: Yes (Death)
  Sender: FDA-Public Use
  Company Number: JP-JNJFOC-20110701146

PATIENT
  Age: 63 Year
  Sex: Male

DRUGS (6)
  1. RISPERDAL [Suspect]
     Indication: PRODUCT USED FOR UNKNOWN INDICATION
     Route: 048
  2. DEFEKTON [Concomitant]
     Route: 048
  3. RISPERDAL [Suspect]
     Route: 048
  4. UNKNOWN MEDICATION [Concomitant]
     Indication: PROPHYLAXIS AGAINST GASTROINTESTINAL ULCER
     Route: 065
  5. BASEN [Concomitant]
     Route: 048
  6. ANTI-PARKINSONIAN DRUGS [Concomitant]
     Route: 065

REACTIONS (1)
  - HYPOGLYCAEMIA [None]
